FAERS Safety Report 6105856-2 (Version None)
Quarter: 2009Q1

REPORT INFORMATION
  Report Type: 
  Country: None (occurrence: None)
  Receive Date: 20090306
  Receipt Date: 20090225
  Transmission Date: 20090719
  Serious: Yes (Life-Threatening, Hospitalization, Disabling)
  Sender: FDA-Public Use
  Company Number: US-MERCK-0902USA01514

PATIENT
  Age: 23 Year
  Sex: Female
  Weight: 70 kg

DRUGS (9)
  1. SINGULAIR [Suspect]
     Indication: ASTHMA
     Route: 048
     Dates: start: 20051114, end: 20061024
  2. SINGULAIR [Suspect]
     Route: 048
     Dates: start: 20080516, end: 20090101
  3. PREDNISONE [Concomitant]
     Indication: ASTHMA
     Route: 048
     Dates: start: 20080923, end: 20080930
  4. ADVAIR HFA [Concomitant]
     Indication: ASTHMA
     Route: 048
     Dates: start: 20051101, end: 20061024
  5. ADVAIR HFA [Concomitant]
     Route: 048
     Dates: start: 20070227
  6. ASMANEX TWISTHALER [Concomitant]
     Route: 065
     Dates: start: 20081024, end: 20080101
  7. ALBUTEROL SULFATE [Concomitant]
     Route: 065
  8. MIRENA [Concomitant]
     Route: 065
  9. ZITHROMAX [Concomitant]
     Route: 065

REACTIONS (13)
  - ALLERGIC GRANULOMATOUS ANGIITIS [None]
  - ASTHMA [None]
  - BRONCHITIS [None]
  - DRUG EXPOSURE DURING PREGNANCY [None]
  - EYE DISORDER [None]
  - EYE OEDEMA [None]
  - HEADACHE [None]
  - LOSS OF CONSCIOUSNESS [None]
  - NAUSEA [None]
  - NEUROPATHY PERIPHERAL [None]
  - ORAL HERPES [None]
  - STREPTOCOCCAL INFECTION [None]
  - UPPER RESPIRATORY TRACT INFECTION [None]
